FAERS Safety Report 23513889 (Version 1)
Quarter: 2024Q1

REPORT INFORMATION
  Report Type: Spontaneous
  Country: US (occurrence: None)
  Receive Date: 20240212
  Receipt Date: 20240212
  Transmission Date: 20240410
  Serious: No
  Sender: FDA-Public Use
  Company Number: None

PATIENT
  Age: 74 Year
  Sex: Male

DRUGS (2)
  1. AMBRISENTAN [Suspect]
     Active Substance: AMBRISENTAN
     Indication: Pulmonary arterial hypertension
     Dosage: 10MG QD ORAL?
     Route: 048
     Dates: start: 20230331, end: 20230615
  2. TADALAFIL [Suspect]
     Active Substance: TADALAFIL

REACTIONS (4)
  - Nasal congestion [None]
  - Oedema peripheral [None]
  - Pulmonary hypertension [None]
  - Therapy cessation [None]

NARRATIVE: CASE EVENT DATE: 20230615
